FAERS Safety Report 5934377-2 (Version None)
Quarter: 2008Q4

REPORT INFORMATION
  Report Type: 
  Country: None (occurrence: None)
  Receive Date: 20081029
  Receipt Date: 20081023
  Transmission Date: 20090506
  Serious: Yes (Other)
  Sender: FDA-Public Use
  Company Number: PHBS2008CH06123

PATIENT
  Age: 33 Month
  Sex: Male

DRUGS (1)
  1. CARBAMAZEPINE [Suspect]
     Indication: PARTIAL SEIZURES

REACTIONS (6)
  - AGITATION [None]
  - CEREBRAL DISORDER [None]
  - DISTURBANCE IN ATTENTION [None]
  - FALL [None]
  - IMPULSIVE BEHAVIOUR [None]
  - IRRITABILITY [None]
